FAERS Safety Report 12403544 (Version 3)
Quarter: 2016Q2

REPORT INFORMATION
  Report Type: Report from Study
  Country: BR (occurrence: BR)
  Receive Date: 20160525
  Receipt Date: 20160617
  Transmission Date: 20160815
  Serious: Yes (Other)
  Sender: FDA-Public Use
  Company Number: PHHY2016BR070999

PATIENT
  Sex: Female
  Weight: 39 kg

DRUGS (2)
  1. SANDOSTATIN LAR DEPOT [Suspect]
     Active Substance: OCTREOTIDE ACETATE
     Dosage: 40 MG, ONCE/SINGLE
     Route: 065
     Dates: start: 201603
  2. SANDOSTATIN LAR DEPOT [Suspect]
     Active Substance: OCTREOTIDE ACETATE
     Indication: LUNG CANCER METASTATIC
     Dosage: 30 MG, QMO/EVERY 28 DAYS
     Route: 030
     Dates: start: 2012

REACTIONS (12)
  - Pain in extremity [Recovering/Resolving]
  - Incorrect dose administered [Unknown]
  - Bile duct obstruction [Recovering/Resolving]
  - Malnutrition [Unknown]
  - Weight decreased [Recovering/Resolving]
  - Salivary gland mass [Recovering/Resolving]
  - Metastases to pancreas [Recovering/Resolving]
  - Injection site pain [Recovered/Resolved]
  - Sciatic nerve injury [Recovered/Resolved]
  - Metastases to salivary gland [Recovering/Resolving]
  - Product use issue [Unknown]
  - Drug ineffective [Unknown]

NARRATIVE: CASE EVENT DATE: 2012
